FAERS Safety Report 10078548 (Version 1)
Quarter: 2014Q2

REPORT INFORMATION
  Report Type: Report from Study
  Country: CA (occurrence: CA)
  Receive Date: 20140415
  Receipt Date: 20140415
  Transmission Date: 20141212
  Serious: Yes (Death, Hospitalization)
  Sender: FDA-Public Use
  Company Number: CA-JNJFOC-20140407177

PATIENT
  Sex: Female

DRUGS (1)
  1. ACETAMINOPHEN [Suspect]
     Indication: PRODUCT USED FOR UNKNOWN INDICATION
     Route: 065
     Dates: start: 19930224, end: 19930224

REACTIONS (5)
  - Sepsis [Fatal]
  - Peritonitis [Fatal]
  - Necrotising colitis [Fatal]
  - Hydrocephalus [Not Recovered/Not Resolved]
  - Meningomyelocele [Not Recovered/Not Resolved]
